FAERS Safety Report 10024072 (Version 1)
Quarter: 2014Q1

REPORT INFORMATION
  Report Type: Spontaneous
  Country: US (occurrence: None)
  Receive Date: 20140318
  Receipt Date: 20140318
  Transmission Date: 20141002
  Serious: Yes (Other)
  Sender: FDA-Public Use
  Company Number: 2014-00041

PATIENT
  Age: 56 Year
  Sex: Female

DRUGS (1)
  1. ZICAM COLD REMEDY RAPIDMELTS [Suspect]
     Dosage: RAPIDMELTS BY MOUTH TWICE
     Dates: start: 20140303, end: 20140305

REACTIONS (3)
  - Ocular hyperaemia [None]
  - Nasal discomfort [None]
  - Anosmia [None]
